FAERS Safety Report 8901469 (Version 1)
Quarter: 2012Q4

REPORT INFORMATION
  Report Type: 
  Country: JP (occurrence: JP)
  Receive Date: 20121108
  Receipt Date: 20121108
  Transmission Date: 20130627
  Serious: Yes (Hospitalization)
  Sender: FDA-Public Use
  Company Number: JP-ROXANE LABORATORIES, INC.-2012-RO-02347RO

PATIENT
  Age: 34 Year
  Sex: Male

DRUGS (5)
  1. LITHIUM CARBONATE [Suspect]
     Indication: BIPOLAR DISORDER
     Dosage: 1000 mg
     Dates: start: 1996, end: 201008
  2. RISPERIDONE [Suspect]
     Indication: BIPOLAR DISORDER
     Dosage: 6 mg
     Dates: start: 199708, end: 199903
  3. HALOPERIDOL [Suspect]
     Indication: BIPOLAR DISORDER
     Dates: start: 1996, end: 199708
  4. VALPROIC ACID [Suspect]
     Indication: BIPOLAR DISORDER
     Dates: start: 201008, end: 201009
  5. VALPROIC ACID [Suspect]
     Dosage: 1600 mg
     Dates: start: 201009, end: 201009

REACTIONS (3)
  - Dystonia [Recovered/Resolved with Sequelae]
  - Mania [Recovered/Resolved]
  - Renal failure [Unknown]
